FAERS Safety Report 13547771 (Version 1)
Quarter: 2017Q2

REPORT INFORMATION
  Report Type: Spontaneous
  Country: US (occurrence: US)
  Receive Date: 20170516
  Receipt Date: 20170516
  Transmission Date: 20170830
  Serious: No
  Sender: FDA-Public Use
  Company Number: US-BAUSCH-BL-2017-004657

PATIENT
  Age: 50 Year
  Sex: Male

DRUGS (8)
  1. LATANOPROST OPHTHALMIC SOLUTION 0.005% [Suspect]
     Active Substance: LATANOPROST
     Indication: INTRAOCULAR PRESSURE INCREASED
     Route: 047
  2. FISH OIL [Concomitant]
     Active Substance: FISH OIL
     Indication: PRODUCT USED FOR UNKNOWN INDICATION
     Route: 065
  3. MURO 128 [Suspect]
     Active Substance: SODIUM CHLORIDE
     Indication: DRY EYE
  4. LEVOTHYROXINE. [Concomitant]
     Active Substance: LEVOTHYROXINE
     Indication: PRODUCT USED FOR UNKNOWN INDICATION
     Route: 065
  5. MURO 128 [Suspect]
     Active Substance: SODIUM CHLORIDE
     Dosage: 1 DROP IN HIS LEFT AND RIGHT EYE
     Route: 047
     Dates: start: 20170220
  6. MURO 128 [Suspect]
     Active Substance: SODIUM CHLORIDE
     Indication: CORNEAL DISORDER
     Dosage: ONE APPLICATION IN THE LEFT EYE, ONCE NIGHTLY
     Route: 047
     Dates: start: 20170127
  7. VITAMINS [Concomitant]
     Active Substance: VITAMINS
     Indication: PRODUCT USED FOR UNKNOWN INDICATION
     Route: 065
  8. MURO 128 [Suspect]
     Active Substance: SODIUM CHLORIDE
     Indication: CORNEAL DISORDER
     Dosage: 1 DROP IN BOTH EYES ONCE NIGHTLY
     Route: 047

REACTIONS (4)
  - Dry eye [Unknown]
  - Vision blurred [Unknown]
  - Visual impairment [Unknown]
  - Eye irritation [Unknown]

NARRATIVE: CASE EVENT DATE: 2017
